FAERS Safety Report 4955493-8 (Version None)
Quarter: 2006Q1

REPORT INFORMATION
  Report Type: 
  Country: None (occurrence: None)
  Receive Date: 20060328
  Receipt Date: 20060313
  Transmission Date: 20060701
  Serious: Yes (Other)
  Sender: FDA-Public Use
  Company Number: FR-GLAXOSMITHKLINE-B0417372A

PATIENT
  Age: 13 Year
  Sex: Male
  Weight: 31 kg

DRUGS (9)
  1. ACYCLOVIR [Suspect]
     Indication: CYTOMEGALOVIRUS CHORIORETINITIS
     Dosage: 200MG THREE TIMES PER DAY
     Route: 065
  2. AMOXICILLIN [Suspect]
     Indication: LISTERIOSIS
     Route: 065
  3. COTRIMOXAZOLE [Suspect]
     Indication: DRUG USE FOR UNKNOWN INDICATION
     Route: 065
  4. GANCICLOVIR [Suspect]
     Indication: CYTOMEGALOVIRUS CHORIORETINITIS
     Route: 042
     Dates: start: 20040601
  5. TEICOPLANIN [Suspect]
     Indication: DRUG USE FOR UNKNOWN INDICATION
     Route: 065
  6. CEFTAZIDIME [Suspect]
     Indication: DRUG USE FOR UNKNOWN INDICATION
     Route: 065
  7. OMEPRAZOLE [Suspect]
     Indication: DRUG USE FOR UNKNOWN INDICATION
     Route: 065
  8. FUROSEMIDE [Suspect]
     Route: 065
  9. ACETAMINOPHEN [Suspect]
     Route: 065

REACTIONS (7)
  - CONDITION AGGRAVATED [None]
  - CONFUSIONAL STATE [None]
  - HALLUCINATION, VISUAL [None]
  - HYPERGLYCAEMIA [None]
  - INDIRECT INFECTION TRANSMISSION [None]
  - NEUROTOXICITY [None]
  - RENAL IMPAIRMENT [None]
